FAERS Safety Report 7227433-2 (Version None)
Quarter: 2011Q1

REPORT INFORMATION
  Report Type: 
  Country: None (occurrence: None)
  Receive Date: 20110114
  Receipt Date: 20110105
  Transmission Date: 20110831
  Serious: Yes (Other)
  Sender: FDA-Public Use
  Company Number: JP-SANOFI-AVENTIS-2011SA001923

PATIENT
  Sex: Male

DRUGS (10)
  1. ELPLAT [Suspect]
     Indication: RECTAL CANCER
     Route: 041
     Dates: start: 20101207, end: 20101207
  2. AVASTIN [Concomitant]
     Indication: RECTAL CANCER
     Route: 041
     Dates: start: 20101207, end: 20101207
  3. AVASTIN [Concomitant]
     Route: 041
     Dates: start: 20101227, end: 20101227
  4. ELPLAT [Suspect]
     Route: 041
     Dates: start: 20101227, end: 20101227
  5. FLUOROURACIL [Suspect]
     Route: 041
     Dates: start: 20101207, end: 20101208
  6. FLUOROURACIL [Suspect]
     Route: 041
     Dates: start: 20101227, end: 20101228
  7. CALCIUM LEVOFOLINATE [Concomitant]
     Route: 041
     Dates: start: 20101227, end: 20101227
  8. FLUOROURACIL [Suspect]
     Route: 040
     Dates: start: 20101227, end: 20101227
  9. CALCIUM LEVOFOLINATE [Concomitant]
     Indication: RECTAL CANCER
     Route: 041
     Dates: start: 20101207, end: 20101207
  10. FLUOROURACIL [Suspect]
     Indication: RECTAL CANCER
     Route: 040
     Dates: start: 20101207, end: 20101207

REACTIONS (2)
  - METABOLIC ENCEPHALOPATHY [None]
  - HYPERAMMONAEMIA [None]
